FAERS Safety Report 11143045 (Version 4)
Quarter: 2015Q3

REPORT INFORMATION
  Report Type: Spontaneous
  Country: US (occurrence: US)
  Receive Date: 20150528
  Receipt Date: 20150804
  Transmission Date: 20151125
  Serious: Yes (Other)
  Sender: FDA-Public Use
  Company Number: US-009507513-1505USA007782

PATIENT
  Age: 26 Year
  Sex: Female
  Weight: 69.84 kg

DRUGS (1)
  1. NEXPLANON [Suspect]
     Active Substance: ETONOGESTREL
     Indication: CONTRACEPTION
     Dosage: 1 DF, UNK
     Route: 059
     Dates: start: 20150508, end: 20150515

REACTIONS (6)
  - Implant site inflammation [Recovered/Resolved]
  - Implant site swelling [Unknown]
  - Implant site erythema [Recovered/Resolved]
  - Implant site warmth [Recovered/Resolved]
  - Implant site pustules [Recovered/Resolved]
  - Pain [Recovered/Resolved]

NARRATIVE: CASE EVENT DATE: 20150508
